FAERS Safety Report 22304716 (Version 2)
Quarter: 2023Q2

REPORT INFORMATION
  Report Type: Spontaneous
  Country: GB (occurrence: GB)
  Receive Date: 20230510
  Receipt Date: 20230525
  Transmission Date: 20230721
  Serious: Yes (Hospitalization, Other)
  Sender: FDA-Public Use
  Company Number: GB-BAXTER-2023BAX012832

PATIENT
  Age: 57 Year
  Sex: Female

DRUGS (2)
  1. SODIUM CHLORIDE [Suspect]
     Active Substance: SODIUM CHLORIDE
     Indication: Haemodialysis
     Dosage: 1000 MILLILITERS VIAFLO
     Route: 010
     Dates: start: 20230213
  2. TINZAPARIN [Suspect]
     Active Substance: TINZAPARIN
     Indication: Haemodialysis
     Dosage: 10000 IU/ML, 3500 IU/0.35 ML
     Route: 010
     Dates: start: 20230213

REACTIONS (8)
  - Sepsis [Recovering/Resolving]
  - Pain in extremity [Recovering/Resolving]
  - Back pain [Recovering/Resolving]
  - Pain [Recovering/Resolving]
  - Chills [Recovering/Resolving]
  - Body temperature abnormal [Recovering/Resolving]
  - Nausea [Recovering/Resolving]
  - Skin ulcer [Unknown]

NARRATIVE: CASE EVENT DATE: 20230213
